FAERS Safety Report 23948903 (Version 7)
Quarter: 2025Q2

REPORT INFORMATION
  Report Type: Report from Study
  Country: SA (occurrence: SA)
  Receive Date: 20240607
  Receipt Date: 20250612
  Transmission Date: 20250716
  Serious: Yes (Other)
  Sender: ROCHE
  Company Number: SA-ROCHE-3506827

PATIENT
  Age: 7 Year
  Sex: Male
  Weight: 27 kg

DRUGS (3)
  1. EVRYSDI [Suspect]
     Active Substance: RISDIPLAM
     Indication: Spinal muscular atrophy
     Dosage: 4.5 MG
     Route: 048
     Dates: start: 20230929, end: 20250601
  2. EVRYSDI [Suspect]
     Active Substance: RISDIPLAM
     Route: 048
  3. CHOLECALCIFEROL [Concomitant]
     Active Substance: CHOLECALCIFEROL
     Indication: Spinal muscular atrophy
     Route: 048
     Dates: start: 202309

REACTIONS (7)
  - Product monitoring error [Unknown]
  - Weight increased [Unknown]
  - Oedema peripheral [Unknown]
  - Nasopharyngitis [Recovered/Resolved]
  - Pyrexia [Recovered/Resolved]
  - Thermal burn [Recovering/Resolving]
  - Drug ineffective [Unknown]

NARRATIVE: CASE EVENT DATE: 20240131
